FAERS Safety Report 7482064-4 (Version None)
Quarter: 2011Q2

REPORT INFORMATION
  Report Type: 
  Country: None (occurrence: None)
  Receive Date: 20110516
  Receipt Date: 20110511
  Transmission Date: 20111010
  Serious: Yes (Death, Other)
  Sender: FDA-Public Use
  Company Number: PHHY2011FR40027

PATIENT

DRUGS (3)
  1. NEORAL [Suspect]
     Dosage: UNK UKN, UNK
  2. PEGINTERFERON ALFA-2A [Suspect]
     Dosage: UNK UKN, UNK
     Dates: start: 20000101
  3. MYCOPHENOLATE MOFETIL [Suspect]
     Dosage: UNK UKN, UNK

REACTIONS (10)
  - INFLAMMATION [None]
  - HEPATIC CIRRHOSIS [None]
  - CONVULSION [None]
  - FIBROSIS [None]
  - HEPATITIS C [None]
  - RENAL FAILURE [None]
  - NEPHROPATHY TOXIC [None]
  - SEPSIS [None]
  - HEPATITIS CHRONIC ACTIVE [None]
  - ANAEMIA [None]
